FAERS Safety Report 9468732 (Version 2)
Quarter: 2013Q4

REPORT INFORMATION
  Report Type: Spontaneous
  Country: US (occurrence: None)
  Receive Date: 20130814
  Receipt Date: 20131127
  Transmission Date: 20140711
  Serious: Yes (Hospitalization)
  Sender: FDA-Public Use
  Company Number: DSU-2013-04244

PATIENT
  Age: 74 Year
  Sex: Male

DRUGS (9)
  1. WELCHOL [Suspect]
     Route: 048
     Dates: start: 20130430, end: 20130514
  2. WELCHOL [Suspect]
     Indication: TYPE 2 DIABETES MELLITUS
     Route: 048
     Dates: start: 20130430, end: 20130514
  3. ACTOS [Concomitant]
  4. LOVAZA [Concomitant]
  5. NEURONTIN [Concomitant]
  6. NEURONTIN (GABAPENTIN) [Concomitant]
  7. METFORMIN ER (METFORMIN HYDROCHLORIDE) [Concomitant]
  8. LOVASTATIN (LOVASTATIN) (40 MILLIGRAM, TABLET) (LOVASTATIN) [Concomitant]
  9. COREG CR (CARVEDILOL) (20 MILLIGRAM, CAPSULE) (CARVEDILOL) [Concomitant]

REACTIONS (1)
  - Duodenitis [None]
